FAERS Safety Report 14465744 (Version 2)
Quarter: 2021Q4

REPORT INFORMATION
  Report Type: Spontaneous
  Country: CA (occurrence: CA)
  Receive Date: 20180131
  Receipt Date: 20211227
  Transmission Date: 20220303
  Serious: Yes (Hospitalization)
  Sender: FDA-Public Use
  Company Number: CA-009507513-1801CAN014509

PATIENT
  Age: 61 Year
  Sex: Female
  Weight: 84.8 kg

DRUGS (48)
  1. EMEND [Suspect]
     Active Substance: APREPITANT
     Indication: Supportive care
     Dosage: BEFORE CYCLOPHOSPHAMIDE AND DOXORUBICIN TREATMENT
     Route: 048
     Dates: start: 20170109, end: 20170109
  2. EMEND [Suspect]
     Active Substance: APREPITANT
     Dosage: BEFORE CYCLOPHOSPHAMIDE AND DOXORUBICIN TREATMENT
     Route: 048
     Dates: start: 20170127, end: 20170127
  3. EMEND [Suspect]
     Active Substance: APREPITANT
     Dosage: BEFORE CYCLOPHOSPHAMIDE AND DOXORUBICIN TREATMENT
     Route: 048
     Dates: start: 20170206, end: 20170206
  4. EMEND [Suspect]
     Active Substance: APREPITANT
     Dosage: BEFORE CYCLOPHOSPHAMIDE AND DOXORUBICIN TREATMENT
     Route: 048
     Dates: start: 20170221, end: 20170221
  5. EMEND [Suspect]
     Active Substance: APREPITANT
     Dosage: 80 MILLIGRAM, QD
     Route: 048
     Dates: start: 20170110, end: 20170111
  6. EMEND [Suspect]
     Active Substance: APREPITANT
     Dosage: 80 MILLIGRAM, QD
     Route: 048
     Dates: start: 20170124, end: 20170125
  7. EMEND [Suspect]
     Active Substance: APREPITANT
     Dosage: 80 MILLIGRAM, QD
     Route: 048
     Dates: start: 20170207, end: 20170208
  8. EMEND [Suspect]
     Active Substance: APREPITANT
     Dosage: 80 MILLIGRAM, QD
     Route: 048
     Dates: start: 20170222, end: 20170223
  9. DOXORUBICIN HYDROCHLORIDE [Suspect]
     Active Substance: DOXORUBICIN HYDROCHLORIDE
     Indication: Breast cancer
     Dosage: 1 EVERY 14 DAY(S)
     Route: 042
     Dates: start: 20170109, end: 20170109
  10. DOXORUBICIN HYDROCHLORIDE [Suspect]
     Active Substance: DOXORUBICIN HYDROCHLORIDE
     Dosage: 1 EVERY 14 DAY(S)
     Route: 042
     Dates: start: 20170123, end: 20170123
  11. DOXORUBICIN HYDROCHLORIDE [Suspect]
     Active Substance: DOXORUBICIN HYDROCHLORIDE
     Dosage: 1 EVERY 14 DAY(S)
     Route: 042
     Dates: start: 20170206, end: 20170206
  12. DOXORUBICIN HYDROCHLORIDE [Suspect]
     Active Substance: DOXORUBICIN HYDROCHLORIDE
     Dosage: 1 EVERY 14 DAY(S)
     Route: 042
     Dates: start: 20170221, end: 20170221
  13. LEVAQUIN [Suspect]
     Active Substance: LEVOFLOXACIN
     Indication: Adverse event
     Dosage: 500 MG, QD
     Route: 048
     Dates: start: 20170307
  14. METOCLOPRAMIDE [Suspect]
     Active Substance: METOCLOPRAMIDE
     Indication: Product used for unknown indication
     Dosage: 10 MG, QD
     Route: 048
     Dates: start: 20170221
  15. ONDANSETRON [Suspect]
     Active Substance: ONDANSETRON
     Indication: Supportive care
     Dosage: 8 MG, UNK
     Route: 048
     Dates: start: 20170109, end: 20170109
  16. ONDANSETRON [Suspect]
     Active Substance: ONDANSETRON
     Dosage: 8 MG, UNK
     Route: 048
     Dates: start: 20170123, end: 20170123
  17. ONDANSETRON [Suspect]
     Active Substance: ONDANSETRON
     Dosage: 8 MG, UNK
     Route: 048
     Dates: start: 20170206, end: 20170206
  18. ONDANSETRON [Suspect]
     Active Substance: ONDANSETRON
     Dosage: 8 MG, UNK
     Route: 048
     Dates: start: 20170221, end: 20170221
  19. ONDANSETRON [Suspect]
     Active Substance: ONDANSETRON
     Dosage: 8 MG, UNK
     Route: 048
  20. ONDANSETRON [Suspect]
     Active Substance: ONDANSETRON
     Dosage: 8 MG, UNK
     Route: 048
  21. ONDANSETRON [Suspect]
     Active Substance: ONDANSETRON
     Dosage: 8 MG, UNK
     Route: 048
  22. ONDANSETRON [Suspect]
     Active Substance: ONDANSETRON
     Dosage: 8 MG, UNK
     Route: 048
  23. PANTOPRAZOLE [Suspect]
     Active Substance: PANTOPRAZOLE
     Indication: Product used for unknown indication
     Dosage: 40 MG, QD
     Route: 048
     Dates: start: 20170201
  24. PEGFILGRASTIM [Suspect]
     Active Substance: PEGFILGRASTIM
     Indication: Supportive care
     Dosage: 6 MG, UNK
     Route: 058
     Dates: start: 20170111, end: 20170111
  25. PEGFILGRASTIM [Suspect]
     Active Substance: PEGFILGRASTIM
     Dosage: 6 MG, UNK
     Route: 058
     Dates: start: 20170125, end: 20170125
  26. PEGFILGRASTIM [Suspect]
     Active Substance: PEGFILGRASTIM
     Dosage: 6 MG, UNK
     Route: 058
     Dates: start: 20170329, end: 20170329
  27. PEGFILGRASTIM [Suspect]
     Active Substance: PEGFILGRASTIM
     Dosage: 6 MG, UNK
     Route: 058
     Dates: start: 20170412, end: 20170412
  28. PEGFILGRASTIM [Suspect]
     Active Substance: PEGFILGRASTIM
     Dosage: 6 MG, UNK
     Route: 058
     Dates: start: 20170426, end: 20170426
  29. PEGFILGRASTIM [Suspect]
     Active Substance: PEGFILGRASTIM
     Dosage: 6 MG, UNK
     Route: 058
  30. PEGFILGRASTIM [Suspect]
     Active Substance: PEGFILGRASTIM
     Dosage: 6 MG, UNK
     Route: 058
  31. PREDNISONE [Suspect]
     Active Substance: PREDNISONE
     Indication: Adverse event
     Dosage: FOR 4 DAYS
     Route: 065
     Dates: start: 20170307
  32. PREDNISONE [Suspect]
     Active Substance: PREDNISONE
     Dosage: FOR 3 DAYS
     Route: 065
  33. CYCLOPHOSPHAMIDE [Suspect]
     Active Substance: CYCLOPHOSPHAMIDE
     Indication: Breast cancer
     Dosage: 1210 MG, 1 EVERY 14 DAY (S)
     Route: 042
     Dates: start: 20170109, end: 20170109
  34. CYCLOPHOSPHAMIDE [Suspect]
     Active Substance: CYCLOPHOSPHAMIDE
     Dosage: 1210 MG, 1 EVERY 14 DAY (S)
     Route: 042
     Dates: start: 20170123, end: 20170123
  35. CYCLOPHOSPHAMIDE [Suspect]
     Active Substance: CYCLOPHOSPHAMIDE
     Dosage: 1210 MG, 1 EVERY 14 DAY (S)
     Route: 042
     Dates: start: 20170206, end: 20170206
  36. CYCLOPHOSPHAMIDE [Suspect]
     Active Substance: CYCLOPHOSPHAMIDE
     Dosage: 1210 MG, 1 EVERY 14 DAY (S)
     Route: 042
     Dates: start: 20170221, end: 20170221
  37. TAMIFLU [Suspect]
     Active Substance: OSELTAMIVIR PHOSPHATE
     Indication: Adverse event
     Dosage: 75 MG, BID
     Route: 065
     Dates: start: 20170307
  38. TRASTUZUMAB [Suspect]
     Active Substance: TRASTUZUMAB
     Indication: Breast cancer
     Dosage: UNK
     Route: 065
  39. VITAMIN D NOS [Concomitant]
     Active Substance: VITAMIN D NOS
     Indication: Product used for unknown indication
     Dosage: 2000 IU, QD
     Route: 048
  40. PACLITAXEL [Concomitant]
     Active Substance: PACLITAXEL
     Indication: Breast cancer
     Dosage: UNK
     Route: 065
     Dates: start: 20170327
  41. NAPROXEN [Concomitant]
     Active Substance: NAPROXEN
     Indication: Product used for unknown indication
     Dosage: 220 MG, PRN
     Route: 048
  42. HYDROMORPHONE [Concomitant]
     Active Substance: HYDROMORPHONE
     Indication: Product used for unknown indication
     Dosage: ONCE EVERY 4 HOURS
     Route: 048
     Dates: start: 20170424
  43. GABAPENTIN [Concomitant]
     Active Substance: GABAPENTIN
     Indication: Product used for unknown indication
     Dosage: DOSE: 300-600 MG; FREQUENCY: THREE TIMES A DAY (TID)
     Route: 048
  44. DEXAMETHASONE [Concomitant]
     Active Substance: DEXAMETHASONE
     Indication: Supportive care
     Dosage: 20 MG, QD
     Route: 048
     Dates: start: 20170423, end: 20170424
  45. DEXAMETHASONE [Concomitant]
     Active Substance: DEXAMETHASONE
     Dosage: 20 MG, QD
     Route: 048
  46. DEXAMETHASONE [Concomitant]
     Active Substance: DEXAMETHASONE
     Dosage: 20 MG, QD
     Route: 048
  47. CITALOPRAM [Concomitant]
     Active Substance: CITALOPRAM HYDROBROMIDE
     Indication: Product used for unknown indication
     Dosage: 20 MG, QD
     Route: 048
  48. ACETAMINOPHEN [Concomitant]
     Active Substance: ACETAMINOPHEN
     Indication: Product used for unknown indication
     Dosage: 1300 MG, AS REQUIRED
     Route: 048

REACTIONS (8)
  - Asthenia [Recovering/Resolving]
  - Dyspnoea [Recovering/Resolving]
  - Gastrointestinal disorder [Recovering/Resolving]
  - Respiratory failure [Unknown]
  - Respiratory syncytial virus infection [Unknown]
  - Atelectasis [Unknown]
  - Decreased appetite [Unknown]
  - Nausea [Recovering/Resolving]

NARRATIVE: CASE EVENT DATE: 20170221
